FAERS Safety Report 9280818 (Version 2)
Quarter: 2013Q3

REPORT INFORMATION
  Report Type: Spontaneous
  Country: ES (occurrence: ES)
  Receive Date: 20130509
  Receipt Date: 20130815
  Transmission Date: 20140515
  Serious: Yes (Life-Threatening, Hospitalization)
  Sender: FDA-Public Use
  Company Number: ES-ROCHE-1212620

PATIENT
  Age: 68 Year
  Sex: Female

DRUGS (19)
  1. METHOTREXATE [Suspect]
     Indication: POLYMYALGIA RHEUMATICA
  2. PREDNISONE [Suspect]
     Indication: ARTERITIS
     Route: 048
     Dates: start: 20120517
  3. PREDNISONE [Suspect]
     Indication: POLYMYALGIA RHEUMATICA
  4. ADIRO [Concomitant]
     Indication: ARTERITIS
     Route: 048
  5. ADIRO [Concomitant]
     Indication: POLYMYALGIA RHEUMATICA
  6. CLOPIDOGREL [Concomitant]
     Indication: ARTERIOSCLEROSIS
     Route: 048
  7. UNIKET [Concomitant]
     Indication: MYOCARDIAL ISCHAEMIA
     Route: 062
  8. NATECAL D [Concomitant]
     Indication: OSTEOPOROSIS
     Route: 048
  9. RISEDRONATO SODICO [Concomitant]
     Indication: OSTEOPOROSIS
     Route: 048
  10. BISOPROLOL [Concomitant]
     Indication: MYOCARDIAL ISCHAEMIA
     Route: 048
  11. OMEPRAZOLE [Concomitant]
     Indication: PROPHYLAXIS AGAINST GASTROINTESTINAL ULCER
     Route: 048
  12. TORASEMIDE [Concomitant]
     Indication: OEDEMA PERIPHERAL
     Route: 048
  13. ROSUVASTATIN [Concomitant]
     Indication: ARTERIOSCLEROSIS
     Route: 048
  14. CALCIUM FOLINATE [Concomitant]
     Indication: ARTERITIS
     Route: 048
  15. PRAXILENE [Concomitant]
     Indication: ARTERIOSCLEROSIS
     Route: 048
  16. ROACTEMRA [Suspect]
     Indication: ARTERITIS
     Route: 042
     Dates: start: 20130115, end: 20130312
  17. ROACTEMRA [Suspect]
     Indication: OFF LABEL USE
  18. ROACTEMRA [Suspect]
     Indication: POLYMYALGIA RHEUMATICA
  19. METHOTREXATE [Suspect]
     Indication: ARTERITIS
     Route: 058
     Dates: start: 20120712

REACTIONS (5)
  - Pneumonia [Recovered/Resolved]
  - Sepsis [Recovered/Resolved]
  - Neutropenia [Recovered/Resolved]
  - Acute respiratory failure [Unknown]
  - Lymphopenia [Unknown]
